FAERS Safety Report 9272140 (Version 2)
Quarter: 2013Q2

REPORT INFORMATION
  Report Type: Report from Study
  Country: US (occurrence: US)
  Receive Date: 20130506
  Receipt Date: 20130517
  Transmission Date: 20140414
  Serious: Yes (Death)
  Sender: FDA-Public Use
  Company Number: US-ACTELION-A-US2013-82636

PATIENT
  Age: 62 Year
  Sex: Male
  Weight: 109.3 kg

DRUGS (18)
  1. TRACLEER [Suspect]
     Indication: PULMONARY HYPERTENSION
     Dosage: 125 MG, BID
     Route: 048
  2. VENTOLIN HFA [Concomitant]
     Dosage: UNK, PRN
     Route: 055
  3. XARELTO [Concomitant]
     Dosage: 15 MG, UNK
     Route: 048
  4. SEREVENT [Concomitant]
     Dosage: 50 UNK, UNK
     Route: 055
  5. LANOXIN [Concomitant]
     Dosage: 0.125 MG, UNK
     Route: 048
  6. ZOLOFT [Concomitant]
     Dosage: 100 MG, UNK
     Route: 048
  7. MINIPRESS [Concomitant]
     Dosage: 2 MG, UNK
     Route: 048
  8. SEROQUEL [Concomitant]
     Dosage: 200 MG, UNK
     Route: 048
  9. CARDIZEM CD [Concomitant]
     Dosage: 180 MG, UNK
     Route: 048
  10. BETAPACE [Concomitant]
     Dosage: 160 MG, UNK
     Route: 048
  11. DEMADEX [Concomitant]
     Dosage: 20 MG, UNK
     Route: 048
  12. COLACE [Concomitant]
     Dosage: 50 MG, UNK
     Route: 048
  13. SPIRIVA HANDIHALER [Concomitant]
     Dosage: 18 UNK, UNK
     Route: 055
  14. GLUCOPHAGE [Concomitant]
     Dosage: 500 MG, UNK
     Route: 048
  15. LIPITOR [Concomitant]
     Dosage: 40 MG, UNK
     Route: 048
  16. KLOR-CON [Concomitant]
     Route: 048
  17. MUCINEX D [Concomitant]
     Route: 048
  18. OXYGEN [Concomitant]
     Dosage: 6 L, UNK
     Route: 055

REACTIONS (4)
  - Death [Fatal]
  - Cough [Unknown]
  - Dizziness postural [Unknown]
  - Oedema peripheral [Unknown]
